FAERS Safety Report 9374666 (Version 1)
Quarter: 2013Q2

REPORT INFORMATION
  Report Type: Spontaneous
  Country: US (occurrence: US)
  Receive Date: 20130628
  Receipt Date: 20130628
  Transmission Date: 20140414
  Serious: Yes (Other)
  Sender: FDA-Public Use
  Company Number: CHPA2013US010277

PATIENT
  Sex: Female

DRUGS (1)
  1. VOLTAREN GEL [Suspect]
     Indication: ARTHRITIS
     Dosage: UNK, QD PRN
     Dates: start: 2007

REACTIONS (15)
  - Swelling [Not Recovered/Not Resolved]
  - Lymphadenopathy [Unknown]
  - Local swelling [Unknown]
  - Pain [Unknown]
  - Joint injury [Unknown]
  - Oropharyngeal pain [Not Recovered/Not Resolved]
  - Vomiting [Unknown]
  - Skin burning sensation [Unknown]
  - Dysphonia [Unknown]
  - Throat irritation [Unknown]
  - Abdominal discomfort [Not Recovered/Not Resolved]
  - Blister [Unknown]
  - Pyrexia [Not Recovered/Not Resolved]
  - Erythema [Unknown]
  - Drug administered at inappropriate site [Unknown]
